FAERS Safety Report 5043804-7 (Version None)
Quarter: 2006Q2

REPORT INFORMATION
  Report Type: 
  Country: None (occurrence: None)
  Receive Date: 20060629
  Receipt Date: 20060613
  Transmission Date: 20061013
  Serious: Yes (Other)
  Sender: FDA-Public Use
  Company Number: 2006JP000128

PATIENT
  Age: 55 Year
  Sex: Female

DRUGS (1)
  1. PROGRAF [Suspect]
     Indication: BONE MARROW TRANSPLANT

REACTIONS (5)
  - DRY MOUTH [None]
  - ENCEPHALITIS HERPES [None]
  - HERPES ZOSTER [None]
  - PYREXIA [None]
  - SWELLING FACE [None]
